FAERS Safety Report 5580364-6 (Version None)
Quarter: 2007Q4

REPORT INFORMATION
  Report Type: 
  Country: None (occurrence: None)
  Receive Date: 20071228
  Receipt Date: 20071214
  Transmission Date: 20080405
  Serious: Yes (Hospitalization)
  Sender: FDA-Public Use
  Company Number: 2007-03597

PATIENT
  Age: 79 Year
  Sex: Male
  Weight: 59 kg

DRUGS (11)
  1. VELCADE [Suspect]
     Indication: MULTIPLE MYELOMA
     Dosage: 1.80 MG, INTRAVENOUS; 2.20 MG, INTRAVENOUS
     Route: 042
     Dates: start: 20070709, end: 20070716
  2. VELCADE [Suspect]
     Indication: MULTIPLE MYELOMA
     Dosage: 1.80 MG, INTRAVENOUS; 2.20 MG, INTRAVENOUS
     Route: 042
     Dates: start: 20070719, end: 20070802
  3. DEXAMETHASONE TAB [Suspect]
     Indication: MULTIPLE MYELOMA
     Dosage: 40.00 MG, INTRAVENOUS
     Route: 042
     Dates: start: 20070709, end: 20070802
  4. MAGNESIUM OXIDE(MAGNESIUM OXIDE) [Suspect]
     Indication: CONSTIPATION
     Dosage: 1980.00 MG, ORAL
     Route: 048
     Dates: start: 20070711, end: 20070715
  5. ALFAROL (ALFACALCIDOL) [Concomitant]
  6. KYTRIL [Concomitant]
  7. CLARITHROMYCIN [Concomitant]
  8. PRODIF [Concomitant]
  9. EXACIN (ISEPAMICIN SULFATE) [Concomitant]
  10. CEFAZOLIN SODIUM [Concomitant]
  11. GANCICLOVIR [Concomitant]

REACTIONS (9)
  - ANOREXIA [None]
  - ASTHMA [None]
  - CONSTIPATION [None]
  - CYTOMEGALOVIRUS INFECTION [None]
  - DIARRHOEA [None]
  - HYPOKALAEMIA [None]
  - NEUROPATHY PERIPHERAL [None]
  - ORAL INTAKE REDUCED [None]
  - PLATELET COUNT DECREASED [None]
